FAERS Safety Report 9198436 (Version 1)
Quarter: 2013Q1

REPORT INFORMATION
  Report Type: Spontaneous
  Country: US (occurrence: None)
  Receive Date: 20120709
  Receipt Date: 20120709
  Transmission Date: 20140127
  Serious: Yes (Other)
  Sender: FDA-Public Use
  Company Number: PHEH2011US07092

PATIENT
  Age: 39 Year
  Sex: Female
  Weight: 93 kg

DRUGS (5)
  1. GLEEVEC (IMATINIB) [Suspect]
     Route: 048
  2. SPRYCEL (DASATINIB) [Suspect]
     Route: 048
  3. THYROID DRUGS (THYROID DRUGS) [Concomitant]
  4. LEVOTHYROXINE (LEVOTHYROXINE) [Concomitant]
  5. EFFEXOR-XR (VENLAFAXINE HYDROCHLORIDE) [Concomitant]

REACTIONS (3)
  - Neuropathy peripheral [None]
  - Arthralgia [None]
  - Sensory disturbance [None]
